FAERS Safety Report 4558827-1 (Version None)
Quarter: 2005Q1

REPORT INFORMATION
  Report Type: 
  Country: None (occurrence: None)
  Receive Date: 20050121
  Receipt Date: 20050119
  Transmission Date: 20050727
  Serious: Yes (Life-Threatening)
  Sender: FDA-Public Use
  Company Number: FR-GLAXOSMITHKLINE-B0364933A

PATIENT
  Age: 59 Year
  Sex: Male

DRUGS (15)
  1. AUGMENTIN '125' [Suspect]
     Route: 042
     Dates: start: 20041214
  2. DEPAKENE [Concomitant]
     Route: 065
  3. PREVISCAN [Concomitant]
     Route: 065
     Dates: start: 20041203
  4. AOTAL [Concomitant]
     Route: 065
  5. RYTHMODAN [Concomitant]
     Route: 065
  6. SERESTA [Concomitant]
     Route: 065
  7. ATARAX [Concomitant]
     Route: 065
  8. ZOLPIDEM TARTRATE [Concomitant]
     Route: 065
  9. PROPYLTHIOURACIL [Concomitant]
     Route: 065
     Dates: start: 20041203
  10. OMEPRAZOLE [Concomitant]
     Route: 065
  11. GENTAMICIN [Concomitant]
     Route: 065
     Dates: start: 20041214
  12. KARDEGIC [Concomitant]
     Route: 065
  13. STABLON [Concomitant]
     Route: 065
  14. LEVOCETIRIZINE [Concomitant]
     Route: 065
  15. VIT B1 B6 B12 [Concomitant]
     Route: 065

REACTIONS (2)
  - ERYTHEMA [None]
  - HYPOTENSION [None]
